FAERS Safety Report 10171646 (Version 2)
Quarter: 2014Q2

REPORT INFORMATION
  Report Type: Spontaneous
  Country: US (occurrence: None)
  Receive Date: 20140512
  Receipt Date: 20140630
  Transmission Date: 20141212
  Serious: Yes (Disabling)
  Sender: FDA-Public Use
  Company Number: ABR_01625_2014

PATIENT
  Age: 65 Year
  Sex: Female
  Weight: 83.92 kg

DRUGS (20)
  1. BIDIL [Suspect]
     Indication: BLOOD PRESSURE
     Dosage: 1 DF BID [20/37.5 MG]
     Dates: start: 20140421, end: 201404
  2. TYLENOL [Suspect]
     Indication: HEADACHE
  3. REBIF [Suspect]
     Indication: MULTIPLE SCLEROSIS
     Dosage: DF
  4. ASPIRIN [Concomitant]
  5. EARLIA [Concomitant]
  6. CENOVIS FISH OIL WITH OMEGA 3 [Concomitant]
  7. AVAPRO [Concomitant]
  8. LOPRESSOR [Concomitant]
  9. MULTIVITAMINS [Concomitant]
  10. QUNOL MEGA COQ10 [Concomitant]
  11. VITAMIN D3 [Concomitant]
  12. TECFIDERA [Concomitant]
  13. XANAX [Concomitant]
  14. ALLEGRA [Concomitant]
  15. SALINE [Concomitant]
  16. BIOTIN [Concomitant]
  17. GARLIC /01570501/ [Concomitant]
  18. TRIAMCINOLONE ACETONIDE [Concomitant]
  19. PRAMOSONE [Concomitant]
  20. CLINDAMYCIN [Concomitant]

REACTIONS (11)
  - Headache [None]
  - Rhinorrhoea [None]
  - Insomnia [None]
  - Activities of daily living impaired [None]
  - Micturition frequency decreased [None]
  - Injection site irritation [None]
  - Drug ineffective [None]
  - Headache [None]
  - Rash [None]
  - Lymphadenopathy [None]
  - Chills [None]
